FAERS Safety Report 8384796-2 (Version None)
Quarter: 2012Q2

REPORT INFORMATION
  Report Type: 
  Country: None (occurrence: None)
  Receive Date: 20120524
  Receipt Date: 20120522
  Transmission Date: 20120825
  Serious: Yes (Death, Hospitalization)
  Sender: FDA-Public Use
  Company Number: JP-ROCHE-731416

PATIENT
  Sex: Male

DRUGS (15)
  1. ACTEMRA [Suspect]
     Indication: RHEUMATOID ARTHRITIS
     Route: 041
     Dates: start: 20090128, end: 20090128
  2. FOLIAMIN [Concomitant]
     Indication: PROPHYLAXIS
     Route: 048
  3. CYTOTEC [Concomitant]
     Indication: PROPHYLAXIS
     Route: 048
  4. PREDNISOLONE [Concomitant]
     Dosage: 12-30MG
     Route: 048
  5. LORCAM [Concomitant]
     Indication: RHEUMATOID ARTHRITIS
     Route: 048
  6. ISOSORBIDE MONONITRATE [Concomitant]
     Indication: ANGINA PECTORIS
     Route: 048
  7. LENDORMIN D [Concomitant]
     Indication: INSOMNIA
     Route: 048
  8. RISEDRONATE SODIUM [Concomitant]
     Indication: OSTEOPOROSIS
     Route: 048
  9. ASPIRIN [Concomitant]
     Indication: PROPHYLAXIS
     Route: 048
  10. DILTIAZEM HCL [Concomitant]
     Indication: PROPHYLAXIS
     Route: 048
  11. AMLODIPINE [Concomitant]
     Indication: ANGINA PECTORIS
     Route: 048
  12. RHEUMATREX [Concomitant]
     Indication: RHEUMATOID ARTHRITIS
     Route: 048
  13. ISONIAZID [Concomitant]
     Indication: ANTIBIOTIC PROPHYLAXIS
     Route: 048
  14. COTRIM [Concomitant]
     Indication: PROPHYLAXIS
     Route: 048
  15. PREDNISOLONE [Concomitant]
     Indication: RHEUMATOID ARTHRITIS
     Route: 048

REACTIONS (4)
  - MELAENA [None]
  - HENOCH-SCHONLEIN PURPURA [None]
  - INTESTINAL OBSTRUCTION [None]
  - UROSEPSIS [None]
